FAERS Safety Report 9360003 (Version 1)
Quarter: 2013Q2

REPORT INFORMATION
  Report Type: Spontaneous
  Country: JP (occurrence: JP)
  Receive Date: 20130621
  Receipt Date: 20130621
  Transmission Date: 20140414
  Serious: Yes (Hospitalization, Other)
  Sender: FDA-Public Use
  Company Number: PHHY2013JP046084

PATIENT
  Age: 82 Year
  Sex: Male
  Weight: 69 kg

DRUGS (7)
  1. TEGRETOL [Suspect]
     Indication: EPILEPSY
     Dosage: 100 MG, DAILY
     Route: 048
     Dates: start: 20130416, end: 20130429
  2. LAXOBERON [Concomitant]
     Indication: CONSTIPATION
     Dosage: UNK UKN, UNK
     Route: 048
     Dates: start: 20130428
  3. PLETAAL [Concomitant]
     Indication: CEREBRAL INFARCTION
     Dosage: 100 MG, UNK
     Route: 048
     Dates: start: 20130502, end: 20130510
  4. BFLUID [Concomitant]
     Indication: FLUID REPLACEMENT
     Dosage: 1000 UNK, UNK
     Dates: start: 20130429, end: 20130430
  5. SOLACET D [Concomitant]
     Indication: FLUID REPLACEMENT
     Dosage: UNK
     Dates: start: 20130501, end: 20130502
  6. RADICUT [Concomitant]
     Indication: CEREBRAL INFARCTION
     Dosage: 2 DF, UNK
     Dates: start: 20130430, end: 20130509
  7. ARGATROBAN [Concomitant]
     Indication: CEREBRAL INFARCTION
     Dosage: 10 DF, UNK
     Dates: start: 20130430, end: 20130502

REACTIONS (11)
  - Platelet count decreased [Recovered/Resolved]
  - Paralysis [Recovered/Resolved]
  - Fall [Unknown]
  - Coagulopathy [Recovering/Resolving]
  - Dysstasia [Unknown]
  - Blood glucose increased [Unknown]
  - C-reactive protein increased [Unknown]
  - Alanine aminotransferase increased [Unknown]
  - Muscular weakness [Unknown]
  - Dizziness [Unknown]
  - Pyrexia [Recovered/Resolved]
